FAERS Safety Report 6398888-0 (Version None)
Quarter: 2009Q4

REPORT INFORMATION
  Report Type: 
  Country: None (occurrence: None)
  Receive Date: 20091013
  Receipt Date: 20090930
  Transmission Date: 20100525
  Serious: Yes (Other)
  Sender: FDA-Public Use
  Company Number: PHHY2009CA42624

PATIENT
  Sex: Male

DRUGS (2)
  1. DIOVAN [Suspect]
     Dosage: 80 MG, QD
     Route: 048
  2. DIOVAN [Suspect]
     Dosage: 40 MG, QD
     Route: 048

REACTIONS (11)
  - ARTHROPATHY [None]
  - ASTHENIA [None]
  - CHEST PAIN [None]
  - DIZZINESS [None]
  - ERYTHEMA [None]
  - GENITAL DISORDER MALE [None]
  - HAEMATOSPERMIA [None]
  - HAEMORRHAGE [None]
  - HOT FLUSH [None]
  - HYPOTENSION [None]
  - MALAISE [None]
